FAERS Safety Report 7410619-1 (Version None)
Quarter: 2011Q2

REPORT INFORMATION
  Report Type: 
  Country: None (occurrence: None)
  Receive Date: 20110413
  Receipt Date: 20110329
  Transmission Date: 20111010
  Serious: Yes (Death)
  Sender: FDA-Public Use
  Company Number: US-CELGENEUS-163-21880-11033478

PATIENT
  Sex: Male

DRUGS (9)
  1. ASPIRIN [Concomitant]
     Dosage: 81 MILLIGRAM
     Route: 065
     Dates: start: 20030101
  2. REVLIMID [Suspect]
     Indication: MULTIPLE MYELOMA
     Dosage: 15 MILLIGRAM
     Route: 048
     Dates: start: 20100401
  3. AMBIEN [Concomitant]
     Route: 065
     Dates: start: 20100101
  4. FISH OIL [Concomitant]
     Route: 065
     Dates: start: 20060101
  5. PRAVASTATIN [Concomitant]
     Dosage: 80 MILLIGRAM
     Route: 065
     Dates: start: 19950101
  6. NEURONTIN [Concomitant]
     Dosage: 300 MILLIGRAM
     Route: 065
     Dates: start: 20090101
  7. RENVELA [Concomitant]
     Route: 065
     Dates: start: 20110111
  8. REVLIMID [Suspect]
     Dosage: 5 MILLIGRAM
     Route: 048
     Dates: start: 20100901
  9. PROCHLORPERAZINE TAB [Concomitant]
     Dosage: 10 MILLIGRAM
     Route: 065
     Dates: start: 20100101

REACTIONS (1)
  - DEATH [None]
